FAERS Safety Report 20308902 (Version 1)
Quarter: 2022Q1

REPORT INFORMATION
  Report Type: Spontaneous
  Country: US (occurrence: None)
  Receive Date: 20220106
  Receipt Date: 20220106
  Transmission Date: 20220424
  Serious: Yes (Death)
  Sender: FDA-Public Use
  Company Number: None

PATIENT
  Sex: Male
  Weight: 88.0 kg

DRUGS (18)
  1. CAPECITABINE [Suspect]
     Active Substance: CAPECITABINE
     Indication: Pancreatic carcinoma
     Dosage: 2T (1000 MG)  QD 7ON7OFF  PO?
     Route: 048
  2. OMEPRAZOLE [Concomitant]
     Active Substance: OMEPRAZOLE
  3. PRIMIDONE [Concomitant]
     Active Substance: PRIMIDONE
  4. CRESTOR [Concomitant]
     Active Substance: ROSUVASTATIN CALCIUM
  5. ZOLOFT [Concomitant]
     Active Substance: SERTRALINE HYDROCHLORIDE
  6. TRAZODONE [Concomitant]
     Active Substance: TRAZODONE HYDROCHLORIDE
  7. ELIQUIS [Concomitant]
     Active Substance: APIXABAN
  8. ABILIFY [Concomitant]
     Active Substance: ARIPIPRAZOLE
  9. BENZTROPINE [Concomitant]
     Active Substance: BENZTROPINE
  10. MORPHINE SULFATE [Concomitant]
     Active Substance: MORPHINE SULFATE
  11. ARIPIPRAZOLE [Concomitant]
     Active Substance: ARIPIPRAZOLE
  12. TEGRETOL XR [Concomitant]
     Active Substance: CARBAMAZEPINE
  13. VITAMIN D3 [Concomitant]
     Active Substance: CHOLECALCIFEROL
  14. DILAUDID [Suspect]
     Active Substance: HYDROMORPHONE HYDROCHLORIDE
  15. LIDOCAINE-PRILOCAINE [Concomitant]
  16. LISINOPRIL [Suspect]
     Active Substance: LISINOPRIL
  17. MS CONTIN [Suspect]
     Active Substance: MORPHINE SULFATE
  18. VITAMINS [Suspect]
     Active Substance: VITAMINS

REACTIONS (1)
  - Death [None]
